FAERS Safety Report 7089209-9 (Version None)
Quarter: 2010Q4

REPORT INFORMATION
  Report Type: 
  Country: None (occurrence: None)
  Receive Date: 20101029
  Receipt Date: 20101022
  Transmission Date: 20110411
  Serious: Yes (Death, Other)
  Sender: FDA-Public Use
  Company Number: 2010JP006146

PATIENT
  Age: 56 Year
  Sex: Male

DRUGS (3)
  1. PROGRAF [Suspect]
     Indication: LIVER TRANSPLANT
     Dosage: IV DRIP
     Route: 041
  2. PROGRAF [Suspect]
     Indication: LIVER TRANSPLANT
     Dosage: ORAL
     Route: 048
  3. METHYLPREDNISOLONE [Concomitant]

REACTIONS (5)
  - BACTERIAL SEPSIS [None]
  - BURKITT'S LYMPHOMA STAGE IV [None]
  - EPSTEIN-BARR VIRUS ASSOCIATED LYMPHOPROLIFERATIVE DISORDER [None]
  - INFECTION IN AN IMMUNOCOMPROMISED HOST [None]
  - NEUTROPENIC SEPSIS [None]
